FAERS Safety Report 19111119 (Version 2)
Quarter: 2021Q2

REPORT INFORMATION
  Report Type: Spontaneous
  Country: MX (occurrence: MX)
  Receive Date: 20210408
  Receipt Date: 20210415
  Transmission Date: 20210717
  Serious: Yes (Death, Other)
  Sender: FDA-Public Use
  Company Number: NVSC2021MX078214

PATIENT
  Sex: Male
  Weight: 85 kg

DRUGS (2)
  1. CO?DIOVAN [Suspect]
     Active Substance: HYDROCHLOROTHIAZIDE\VALSARTAN
     Indication: HYPERTENSION
     Dosage: 1 DF, QD (160/12.5 MG)
     Route: 048
     Dates: start: 1989
  2. CO?DIOVAN [Suspect]
     Active Substance: HYDROCHLOROTHIAZIDE\VALSARTAN
     Dosage: UNK, QD
     Route: 048

REACTIONS (6)
  - Hypertension [Fatal]
  - Wrong technique in product usage process [Unknown]
  - Diabetic complication [Fatal]
  - Diabetes mellitus [Unknown]
  - Blood pressure abnormal [Unknown]
  - Road traffic accident [Unknown]

NARRATIVE: CASE EVENT DATE: 1989
